FAERS Safety Report 7558883-2 (Version None)
Quarter: 2011Q2

REPORT INFORMATION
  Report Type: 
  Country: None (occurrence: None)
  Receive Date: 20110613
  Receipt Date: 20110527
  Transmission Date: 20111010
  Serious: Yes (Hospitalization)
  Sender: FDA-Public Use
  Company Number: 2010004029

PATIENT
  Age: 50 Year
  Sex: Male
  Weight: 73 kg

DRUGS (9)
  1. INSULIN HUMAN (INSULIN HUMAN) [Concomitant]
  2. GLYBURIDE [Concomitant]
  3. ENALAPRIL MALEATE [Concomitant]
  4. ERLOTINIB HYDROCHLORIDE [Suspect]
     Indication: HEPATIC NEOPLASM MALIGNANT
     Dosage: 150 MG, UID/QD, ORAL; 100 MG, UID/QD, ORAL
     Route: 048
     Dates: start: 20091119, end: 20100323
  5. ERLOTINIB HYDROCHLORIDE [Suspect]
     Indication: HEPATIC NEOPLASM MALIGNANT
     Dosage: 150 MG, UID/QD, ORAL; 100 MG, UID/QD, ORAL
     Route: 048
     Dates: start: 20100324, end: 20100716
  6. SORAFENIB (SORAFENIB) TABLET [Suspect]
     Indication: HEPATIC NEOPLASM MALIGNANT
     Dosage: 400 MG, BID, ORAL; 400 MG, UID/QD, ORAL
     Route: 048
     Dates: start: 20100413, end: 20100716
  7. SORAFENIB (SORAFENIB) TABLET [Suspect]
     Indication: HEPATIC NEOPLASM MALIGNANT
     Dosage: 400 MG, BID, ORAL; 400 MG, UID/QD, ORAL
     Route: 048
     Dates: start: 20091119, end: 20100412
  8. ESSENTIALE (CALCIUM PANTOTHENATE) [Concomitant]
  9. HEPAREGEN (TIMONACIC) [Concomitant]

REACTIONS (1)
  - ANAEMIA [None]
